FAERS Safety Report 20897644 (Version 1)
Quarter: 2022Q2

REPORT INFORMATION
  Report Type: Spontaneous
  Country: US (occurrence: US)
  Receive Date: 20220531
  Receipt Date: 20220531
  Transmission Date: 20220720
  Serious: No
  Sender: FDA-Public Use
  Company Number: US-PFIZER INC-202200764877

PATIENT
  Age: 31 Year
  Sex: Female
  Weight: 52.16 kg

DRUGS (3)
  1. PAXLOVID [Suspect]
     Active Substance: NIRMATRELVIR\RITONAVIR
     Indication: COVID-19 treatment
     Dosage: UNK
     Dates: start: 20220512, end: 20220517
  2. TYLENOL [Concomitant]
     Active Substance: ACETAMINOPHEN
     Dosage: 225 MG
  3. OMEPRAZOLE [Concomitant]
     Active Substance: OMEPRAZOLE
     Indication: Abdominal discomfort
     Dosage: 40 MG

REACTIONS (6)
  - Inflammation [Unknown]
  - Insomnia [Unknown]
  - Feeling abnormal [Unknown]
  - Pain [Unknown]
  - COVID-19 [Unknown]
  - Disease recurrence [Unknown]

NARRATIVE: CASE EVENT DATE: 20220522
